FAERS Safety Report 12264888 (Version 1)
Quarter: 2016Q2

REPORT INFORMATION
  Report Type: Spontaneous
  Country: US (occurrence: US)
  Receive Date: 20160413
  Receipt Date: 20160413
  Transmission Date: 20160815
  Serious: No
  Sender: FDA-Public Use
  Company Number: US-JNJFOC-20160306295

PATIENT
  Age: 47 Year
  Sex: Male
  Weight: 127.92 kg

DRUGS (6)
  1. TYLENOL 8 HR ARTHRITIS PAIN [Suspect]
     Active Substance: ACETAMINOPHEN
     Indication: SPONDYLITIS
     Dosage: 2 TABLETS ON 02-MAR-2016 AND 2 TABLETS ON 03-MAR-2016
     Route: 048
     Dates: start: 20160302, end: 20160304
  2. PAROXETINE. [Concomitant]
     Active Substance: PAROXETINE
     Indication: PRODUCT USED FOR UNKNOWN INDICATION
     Route: 065
  3. OTHER EMOLLIENTS AND PROTECTIVES [Concomitant]
     Active Substance: UNSPECIFIED INGREDIENT
     Indication: PRODUCT USED FOR UNKNOWN INDICATION
     Route: 065
  4. METFORMIN [Concomitant]
     Active Substance: METFORMIN HYDROCHLORIDE
     Indication: DIABETES MELLITUS
     Route: 065
  5. TYLENOL 8 HR ARTHRITIS PAIN [Suspect]
     Active Substance: ACETAMINOPHEN
     Indication: BACK PAIN
     Dosage: 2 TABLETS ON 02-MAR-2016 AND 2 TABLETS ON 03-MAR-2016
     Route: 048
     Dates: start: 20160302, end: 20160304
  6. ALL OTHER THERAPEUTIC PRODUCTS [Concomitant]
     Active Substance: UNSPECIFIED INGREDIENT
     Indication: BLOOD CHOLESTEROL INCREASED
     Route: 065

REACTIONS (2)
  - Inappropriate schedule of drug administration [Not Recovered/Not Resolved]
  - Gout [Not Recovered/Not Resolved]

NARRATIVE: CASE EVENT DATE: 20160302
